FAERS Safety Report 15835824 (Version 5)
Quarter: 2020Q4

REPORT INFORMATION
  Report Type: Report from Study
  Country: US (occurrence: US)
  Receive Date: 20190117
  Receipt Date: 20201009
  Transmission Date: 20210113
  Serious: Yes (Other)
  Sender: FDA-Public Use
  Company Number: US-009507513-1901USA002096

PATIENT
  Sex: Female
  Weight: 106.9 kg

DRUGS (5)
  1. BENADRYL [Concomitant]
     Active Substance: DIPHENHYDRAMINE HYDROCHLORIDE
  2. PEMBROLIZUMAB. [Suspect]
     Active Substance: PEMBROLIZUMAB
     Indication: ENDOMETRIAL CANCER
     Dosage: 200 MG EVERY 3 WEEKS
     Route: 042
     Dates: start: 20180416
  3. JANUVIA [Suspect]
     Active Substance: SITAGLIPTIN PHOSPHATE
     Indication: BLOOD GLUCOSE INCREASED
  4. VITAMIN D (UNSPECIFIED) [Concomitant]
     Active Substance: VITAMIN D NOS
  5. DOXYCYCLINE. [Concomitant]
     Active Substance: DOXYCYCLINE

REACTIONS (12)
  - Malignant neoplasm progression [Not Recovered/Not Resolved]
  - Scab [Not Recovered/Not Resolved]
  - Constipation [Not Recovered/Not Resolved]
  - Skin ulcer [Recovering/Resolving]
  - Nausea [Not Recovered/Not Resolved]
  - Abdominal distension [Not Recovered/Not Resolved]
  - Dry skin [Recovering/Resolving]
  - Glycosylated haemoglobin abnormal [Not Recovered/Not Resolved]
  - Pruritus [Unknown]
  - Diarrhoea [Not Recovered/Not Resolved]
  - Erythema [Not Recovered/Not Resolved]
  - Skin lesion [Not Recovered/Not Resolved]

NARRATIVE: CASE EVENT DATE: 2018
